FAERS Safety Report 5419578-4 (Version None)
Quarter: 2007Q3

REPORT INFORMATION
  Report Type: 
  Country: None (occurrence: None)
  Receive Date: 20070816
  Receipt Date: 20070816
  Transmission Date: 20080115
  Serious: Yes (Hospitalization)
  Sender: FDA-Public Use
  Company Number: None

PATIENT
  Sex: Female
  Weight: 54.7 kg

DRUGS (3)
  1. FLUOROURACIL [Suspect]
     Dosage: 668 MG
  2. LEUCOVORIN CALCIUM [Suspect]
     Dosage: 668 MG
  3. ELOXATIN [Suspect]
     Dosage: 142 MG

REACTIONS (4)
  - DEHYDRATION [None]
  - NAUSEA [None]
  - RECTAL CANCER [None]
  - VOMITING [None]
